FAERS Safety Report 10035398 (Version 1)
Quarter: 2014Q1

REPORT INFORMATION
  Report Type: Spontaneous
  Country: US (occurrence: None)
  Receive Date: 20140306
  Receipt Date: 20140306
  Transmission Date: 20141002
  Serious: Yes (Other)
  Sender: FDA-Public Use
  Company Number: 163-21880-13062573

PATIENT
  Age: 80 Year
  Sex: Female
  Weight: 57.2 kg

DRUGS (9)
  1. REVLIMID (LENALIDOMIDE) (5 MILLIGRAM, CAPSULES) [Suspect]
     Indication: 5Q MINUS SYNDROME
     Route: 048
     Dates: start: 20121123
  2. DIOVAN (VALSARTAN) [Concomitant]
  3. TRAMADOL HCL [Concomitant]
  4. CYCLOBENAZPRINE [Concomitant]
  5. OXYCODONE HCL [Concomitant]
  6. SPIRIVA HANDIHALER (TIOTROPIUM BROMIDE) [Concomitant]
  7. FUROSEMIDE [Concomitant]
  8. TRIMETHOPRIM [Concomitant]
  9. COUMADIN (WARFARIN SODIUM) [Concomitant]

REACTIONS (1)
  - Spinal fracture [None]
